FAERS Safety Report 26137833 (Version 1)
Quarter: 2025Q4

REPORT INFORMATION
  Report Type: Spontaneous
  Country: CN (occurrence: CN)
  Receive Date: 20251210
  Receipt Date: 20251210
  Transmission Date: 20260118
  Serious: Yes (Other)
  Sender: BEIGENE
  Company Number: CN-BEONEMEDICINES-BGN-2025-021653

PATIENT
  Age: 71 Year
  Sex: Male
  Weight: 50 kg

DRUGS (12)
  1. TISLELIZUMAB [Suspect]
     Active Substance: TISLELIZUMAB
     Indication: Lung adenocarcinoma stage IV
     Dosage: 200 MILLIGRAM, Q3WK
     Dates: start: 20251028
  2. TISLELIZUMAB [Suspect]
     Active Substance: TISLELIZUMAB
     Indication: Metastases to pleura
     Dosage: 200 MILLIGRAM, Q3WK
     Route: 041
     Dates: start: 20251028
  3. TISLELIZUMAB [Suspect]
     Active Substance: TISLELIZUMAB
     Dosage: 200 MILLIGRAM, Q3WK
     Route: 041
     Dates: start: 20251028
  4. TISLELIZUMAB [Suspect]
     Active Substance: TISLELIZUMAB
     Dosage: 200 MILLIGRAM, Q3WK
     Dates: start: 20251028
  5. PEMETREXED DISODIUM [Suspect]
     Active Substance: PEMETREXED DISODIUM
     Indication: Metastases to pleura
     Dosage: 0.75 GRAM, Q3WK
     Dates: start: 20251023
  6. PEMETREXED DISODIUM [Suspect]
     Active Substance: PEMETREXED DISODIUM
     Indication: Lung adenocarcinoma stage IV
     Dosage: 0.75 GRAM, Q3WK
     Route: 041
     Dates: start: 20251023
  7. PEMETREXED DISODIUM [Suspect]
     Active Substance: PEMETREXED DISODIUM
     Dosage: 0.75 GRAM, Q3WK
     Route: 041
     Dates: start: 20251023
  8. PEMETREXED DISODIUM [Suspect]
     Active Substance: PEMETREXED DISODIUM
     Dosage: 0.75 GRAM, Q3WK
     Dates: start: 20251023
  9. CISPLATIN [Suspect]
     Active Substance: CISPLATIN
     Indication: Metastases to pleura
     Dosage: 30 MILLIGRAM, TWICE Q3WK
     Dates: start: 20251027
  10. CISPLATIN [Suspect]
     Active Substance: CISPLATIN
     Indication: Lung adenocarcinoma stage IV
     Dosage: 30 MILLIGRAM, TWICE Q3WK
     Route: 034
     Dates: start: 20251027
  11. CISPLATIN [Suspect]
     Active Substance: CISPLATIN
     Dosage: 30 MILLIGRAM, TWICE Q3WK
     Route: 034
     Dates: start: 20251027
  12. CISPLATIN [Suspect]
     Active Substance: CISPLATIN
     Dosage: 30 MILLIGRAM, TWICE Q3WK
     Dates: start: 20251027

REACTIONS (1)
  - Myelosuppression [Unknown]

NARRATIVE: CASE EVENT DATE: 20251117
